FAERS Safety Report 7346596-1 (Version None)
Quarter: 2011Q1

REPORT INFORMATION
  Report Type: 
  Country: None (occurrence: None)
  Receive Date: 20110311
  Receipt Date: 20110120
  Transmission Date: 20110831
  Serious: No
  Sender: FDA-Public Use
  Company Number: BR-SANOFI-AVENTIS-2011SA005733

PATIENT
  Age: 31 Year
  Sex: Female
  Weight: 83 kg

DRUGS (2)
  1. ARAVA [Suspect]
     Indication: DRUG EXPOSURE BEFORE PREGNANCY
     Route: 048
     Dates: start: 20090301, end: 20100401
  2. ARAVA [Suspect]
     Indication: RHEUMATOID ARTHRITIS
     Route: 048
     Dates: start: 20090301, end: 20100401

REACTIONS (1)
  - DRUG EXPOSURE BEFORE PREGNANCY [None]
